FAERS Safety Report 6121378-7 (Version None)
Quarter: 2009Q1

REPORT INFORMATION
  Report Type: 
  Country: None (occurrence: None)
  Receive Date: 20090313
  Receipt Date: 20090313
  Transmission Date: 20090719
  Serious: Yes (Life-Threatening)
  Sender: FDA-Public Use
  Company Number: None

PATIENT
  Age: 56 Year
  Sex: Female
  Weight: 104.3273 kg

DRUGS (2)
  1. VALTREX [Suspect]
     Indication: HERPES ZOSTER
     Dosage: 1 GM. 3 TIMES DAILY X 7 PO
     Route: 048
     Dates: start: 20090310, end: 20090311
  2. NEURONTIN [Suspect]
     Indication: HEADACHE
     Dosage: 300MG. 3X DAILY PRN PAIN PO
     Route: 048
     Dates: start: 20090310, end: 20090311

REACTIONS (5)
  - BLOOD PRESSURE INCREASED [None]
  - CHEST DISCOMFORT [None]
  - HEART RATE INCREASED [None]
  - MALAISE [None]
  - SOMNOLENCE [None]
